FAERS Safety Report 8348857-6 (Version None)
Quarter: 2012Q2

REPORT INFORMATION
  Report Type: 
  Country: None (occurrence: None)
  Receive Date: 20120508
  Receipt Date: 20120422
  Transmission Date: 20120825
  Serious: Yes (Hospitalization)
  Sender: FDA-Public Use
  Company Number: 12000463

PATIENT
  Age: 86 Year
  Sex: Female
  Weight: 66.2 kg

DRUGS (10)
  1. LISINOPRIL [Concomitant]
  2. FUROSEMIDE [Concomitant]
  3. LOPRESSOR [Concomitant]
  4. POTASSIUM CHLORIDE [Concomitant]
  5. DIGOXIN [Concomitant]
  6. PACERONE [Suspect]
     Indication: HEART RATE IRREGULAR
     Dosage: 100 MG, QD, ORAL, 100 MG, QD, ORAL
     Route: 048
     Dates: start: 20120418
  7. PACERONE [Suspect]
     Indication: HEART RATE IRREGULAR
     Dosage: 100 MG, QD, ORAL, 100 MG, QD, ORAL
     Route: 048
     Dates: start: 20111201, end: 20120415
  8. ASPIRIN [Concomitant]
  9. PLAVIX [Concomitant]
  10. LIPITOR [Concomitant]

REACTIONS (9)
  - DECREASED APPETITE [None]
  - CARDIAC FAILURE CONGESTIVE [None]
  - HYPERAESTHESIA [None]
  - FATIGUE [None]
  - DIARRHOEA [None]
  - HEART RATE DECREASED [None]
  - WEIGHT DECREASED [None]
  - INSOMNIA [None]
  - DYSPNOEA [None]
